FAERS Safety Report 8593077-3 (Version None)
Quarter: 2012Q3

REPORT INFORMATION
  Report Type: 
  Country: None (occurrence: None)
  Receive Date: 20120814
  Receipt Date: 20120807
  Transmission Date: 20120928
  Serious: Yes (Other)
  Sender: FDA-Public Use
  Company Number: FR-GLAXOSMITHKLINE-B0822250A

PATIENT
  Age: 84 Year
  Sex: Male

DRUGS (1)
  1. VALACYCLOVIR HYDROCHLORIDE [Suspect]
     Indication: HERPES ZOSTER
     Dosage: 1000MG THREE TIMES PER DAY
     Route: 048
     Dates: start: 20120803

REACTIONS (8)
  - INFLUENZA [None]
  - EYE PAIN [None]
  - MYALGIA [None]
  - DEPRESSED LEVEL OF CONSCIOUSNESS [None]
  - SINUSITIS [None]
  - COUGH [None]
  - CONJUNCTIVITIS [None]
  - BRONCHITIS [None]
